FAERS Safety Report 7452502 (Version 5)
Quarter: 2012Q4

REPORT INFORMATION
  Report Type: Report from Study
  Country: BE (occurrence: BE)
  Receive Date: 20100702
  Receipt Date: 20121116
  Transmission Date: 20130627
  Serious: Yes (Hospitalization)
  Sender: FDA-Public Use
  Company Number: BE-ABBOTT-10P-013-0652783-00

PATIENT
  Age: 71 Year
  Sex: Male

DRUGS (11)
  1. HUMIRA [Suspect]
     Indication: CROHN^S DISEASE
     Route: 058
     Dates: start: 20080327, end: 20100106
  2. HUMIRA [Suspect]
     Route: 058
     Dates: start: 20100126
  3. QUESTRAN [Concomitant]
     Indication: DIARRHOEA
     Dates: start: 199906
  4. SELENIUM-ACE [Concomitant]
     Indication: VITAMIN SUPPLEMENTATION
     Dates: start: 2001
  5. OMEPRAZOLE [Concomitant]
     Indication: DYSPEPSIA
     Dates: start: 200103
  6. MULTIVITAMIN [Concomitant]
     Indication: VITAMIN SUPPLEMENTATION
  7. CARDIOASPIRIN [Concomitant]
     Indication: PROPHYLAXIS
     Dates: start: 2001
  8. FERCAYL [Concomitant]
     Indication: MINERAL SUPPLEMENTATION
     Dates: start: 200604
  9. NEUROBION [Concomitant]
     Indication: VITAMIN SUPPLEMENTATION
  10. OSTEOPLUS [Concomitant]
     Indication: JOINT STIFFNESS
     Dates: start: 2008
  11. TRITACE [Concomitant]
     Indication: DYSPNOEA EXERTIONAL
     Dates: start: 2010

REACTIONS (1)
  - Small intestinal stenosis [Recovered/Resolved]
